FAERS Safety Report 9418692 (Version 1)
Quarter: 2013Q3

REPORT INFORMATION
  Report Type: Spontaneous
  Country: US (occurrence: US)
  Receive Date: 20130725
  Receipt Date: 20130725
  Transmission Date: 20140515
  Serious: Yes (Death, Hospitalization)
  Sender: FDA-Public Use
  Company Number: US-ACCORD-018682

PATIENT
  Age: 57 Year
  Sex: Female

DRUGS (2)
  1. TACROLIMUS [Suspect]
     Indication: HEART TRANSPLANT
  2. FLUCONAZOLE [Interacting]
     Indication: PRODUCT USED FOR UNKNOWN INDICATION
     Route: 048

REACTIONS (8)
  - Renal failure acute [Recovered/Resolved]
  - Pyrexia [Unknown]
  - Chest pain [Unknown]
  - Nausea [Unknown]
  - Incorrect dose administered [Unknown]
  - Drug interaction [Unknown]
  - Drug level increased [Unknown]
  - Cardiac arrest [Fatal]
